FAERS Safety Report 9246472 (Version 1)
Quarter: 2013Q2

REPORT INFORMATION
  Report Type: Spontaneous
  Country: US (occurrence: US)
  Receive Date: 20130422
  Receipt Date: 20130422
  Transmission Date: 20140414
  Serious: No
  Sender: FDA-Public Use
  Company Number: US-ABBOTT-12P-163-0979862-00

PATIENT
  Sex: Female

DRUGS (2)
  1. LUPRON DEPOT-PED [Suspect]
     Indication: PRODUCT USED FOR UNKNOWN INDICATION
  2. ADD BACK THERAPY [Concomitant]
     Indication: PRODUCT USED FOR UNKNOWN INDICATION

REACTIONS (2)
  - Unevaluable event [Unknown]
  - Palpitations [Unknown]
